FAERS Safety Report 25233988 (Version 3)
Quarter: 2025Q4

REPORT INFORMATION
  Report Type: Spontaneous
  Country: CA (occurrence: CA)
  Receive Date: 20250424
  Receipt Date: 20251103
  Transmission Date: 20260118
  Serious: Yes (Hospitalization)
  Sender: CELLTRION
  Company Number: CA-PFIZER INC-202500077114

PATIENT

DRUGS (14)
  1. INFLIXIMAB [Suspect]
     Active Substance: INFLIXIMAB
     Indication: Colitis ulcerative
     Dosage: 750.0 MILLIGRAM
     Route: 042
  2. INFLIXIMAB [Suspect]
     Active Substance: INFLIXIMAB
     Dosage: 750.0 MILLIGRAM
     Route: 042
  3. INFLIXIMAB [Suspect]
     Active Substance: INFLIXIMAB
     Dosage: 750.0 MILLIGRAM
     Route: 042
  4. INFLIXIMAB [Suspect]
     Active Substance: INFLIXIMAB
     Dosage: 750.0 MILLIGRAM
     Route: 042
  5. INFLECTRA [Suspect]
     Active Substance: INFLIXIMAB-DYYB
     Indication: Colitis ulcerative
     Dosage: 750 MG, EVERY 8 WEEKS
     Route: 042
     Dates: start: 20250212
  6. INFLECTRA [Suspect]
     Active Substance: INFLIXIMAB-DYYB
     Dosage: 750 MG, EVERY 8 WEEKS
     Route: 042
     Dates: start: 20250222
  7. INFLECTRA [Suspect]
     Active Substance: INFLIXIMAB-DYYB
     Dosage: 750 MG, EVERY 8 WEEKS
     Route: 042
     Dates: start: 20250222
  8. INFLECTRA [Suspect]
     Active Substance: INFLIXIMAB-DYYB
     Dosage: AFTER 10 WEEKS AND 2 DAYS
     Route: 042
     Dates: start: 20250425
  9. AZATHIOPRINE [Concomitant]
     Active Substance: AZATHIOPRINE
     Dosage: 100 MG, 2X/DAY
     Route: 065
     Dates: start: 202007
  10. AZATHIOPRINE [Concomitant]
     Active Substance: AZATHIOPRINE
     Dosage: 100 MG, 2 EVERY 1 DAYS
     Route: 065
  11. BETADERM [Concomitant]
     Active Substance: BETAMETHASONE VALERATE
     Indication: Eczema
     Dosage: 1 DF
     Route: 061
  12. MESALAMINE [Concomitant]
     Active Substance: MESALAMINE
     Indication: Colitis
     Dosage: 1 DF, 2X/DAY (2.4 G)
     Route: 048
  13. MESALAMINE [Concomitant]
     Active Substance: MESALAMINE
     Dosage: 1 DF, 2 EVERY 1 DAYS
     Route: 048
  14. ACETAMINOPHEN [Concomitant]
     Active Substance: ACETAMINOPHEN
     Indication: Abdominal pain
     Dosage: 1 DF
     Route: 065

REACTIONS (3)
  - Dysstasia [Not Recovered/Not Resolved]
  - Condition aggravated [Not Recovered/Not Resolved]
  - Pyrexia [Not Recovered/Not Resolved]

NARRATIVE: CASE EVENT DATE: 20250401
